FAERS Safety Report 17134219 (Version 1)
Quarter: 2019Q4

REPORT INFORMATION
  Report Type: Spontaneous
  Country: US (occurrence: US)
  Receive Date: 20191209
  Receipt Date: 20191209
  Transmission Date: 20200122
  Serious: No
  Sender: FDA-Public Use
  Company Number: None

PATIENT
  Age: 29 Year
  Sex: Female
  Weight: 104.33 kg

DRUGS (3)
  1. TYLENOL [Concomitant]
     Active Substance: ACETAMINOPHEN
  2. PARAGARD T 380A [Suspect]
     Active Substance: COPPER
  3. OXYCODONE [Concomitant]
     Active Substance: OXYCODONE

REACTIONS (7)
  - Dysmenorrhoea [None]
  - Gait inability [None]
  - Feeling abnormal [None]
  - Menorrhagia [None]
  - Immobile [None]
  - Dizziness [None]
  - Menstruation irregular [None]

NARRATIVE: CASE EVENT DATE: 20170221
